FAERS Safety Report 4838353-2 (Version None)
Quarter: 2005Q4

REPORT INFORMATION
  Report Type: 
  Country: None (occurrence: None)
  Receive Date: 20051123
  Receipt Date: 20051114
  Transmission Date: 20060501
  Serious: Yes (Hospitalization, Other)
  Sender: FDA-Public Use
  Company Number: 2005042736

PATIENT
  Age: 12 Year
  Sex: Male
  Weight: 40.8237 kg

DRUGS (5)
  1. NEURONTIN [Suspect]
     Indication: BIPOLAR DISORDER
     Dosage: 300 MG (100 MG, 3 IN 1 D), ORAL
     Route: 048
     Dates: start: 20041201
  2. GABAPENTIN [Suspect]
     Indication: BIPOLAR DISORDER
     Dosage: 2700 MG (1 IN 1 TOTAL)
     Dates: start: 20050101, end: 20050201
  3. ABILIFY [Suspect]
     Indication: ILL-DEFINED DISORDER
     Dates: start: 20041201, end: 20050101
  4. LITHIUM CARBONATE [Concomitant]
  5. PREVACID [Concomitant]

REACTIONS (8)
  - ABNORMAL BEHAVIOUR [None]
  - DIARRHOEA [None]
  - DRUG INEFFECTIVE [None]
  - INFLUENZA [None]
  - PALPITATIONS [None]
  - PHARMACEUTICAL PRODUCT COMPLAINT [None]
  - SOMNOLENCE [None]
  - VOMITING [None]
